FAERS Safety Report 26131880 (Version 1)
Quarter: 2025Q4

REPORT INFORMATION
  Report Type: Spontaneous
  Country: GB (occurrence: GB)
  Receive Date: 20251208
  Receipt Date: 20251208
  Transmission Date: 20260118
  Serious: Yes (Other)
  Sender: PFIZER
  Company Number: None

PATIENT
  Age: 63 Year
  Sex: Female
  Weight: 94 kg

DRUGS (7)
  1. METHOTREXATE SODIUM [Interacting]
     Active Substance: METHOTREXATE SODIUM
     Dosage: 12.5MG (FIVE TABLETS) TO BE TAKEN WEEKLY
  2. MOUNJARO [Interacting]
     Active Substance: TIRZEPATIDE
     Dosage: 2.5 MG BUT INCREASED TO 10 MG
     Dates: start: 20250311
  3. MOUNJARO [Interacting]
     Active Substance: TIRZEPATIDE
     Dosage: 2.5 MG BUT INCREASED TO 10 MG
  4. MOMETASONE [Concomitant]
     Active Substance: MOMETASONE
     Dosage: TWO SPRAYS TO BE USED IN EACH NOSTRIL TWICE A DAY, THEN REDUCE WHEN SYMPTOMS UNDER CONTROL
     Route: 045
     Dates: start: 20250317
  5. DOXYCYCLINE [Concomitant]
     Active Substance: DOXYCYCLINE
     Dosage: TWO TO BE TAKEN ON THE FIRST DAY THEN ONE TO BE TAKEN EACH DAY
     Dates: start: 20250317, end: 20250317
  6. DOXYCYCLINE [Concomitant]
     Active Substance: DOXYCYCLINE
     Dosage: TWO TO BE TAKEN ON THE FIRST DAY THEN ONE TO BE TAKEN EACH DAY
     Dates: start: 20250318, end: 20250429
  7. SOLIFENACIN [Concomitant]
     Active Substance: SOLIFENACIN
     Dosage: ONE TO BE TAKEN EACH DAY
     Dates: start: 20250502

REACTIONS (3)
  - Drug interaction [Unknown]
  - Alanine aminotransferase increased [Recovered/Resolved]
  - Blood lactate dehydrogenase increased [Recovered/Resolved]

NARRATIVE: CASE EVENT DATE: 20250101
